FAERS Safety Report 19400764 (Version 1)
Quarter: 2021Q2

REPORT INFORMATION
  Report Type: Spontaneous
  Country: US (occurrence: US)
  Receive Date: 20210610
  Receipt Date: 20210610
  Transmission Date: 20210717
  Serious: No
  Sender: FDA-Public Use
  Company Number: US-SA-2021SA193700

PATIENT
  Age: 50 Year
  Sex: Female

DRUGS (7)
  1. FEXOFENADINE [Concomitant]
     Active Substance: FEXOFENADINE HYDROCHLORIDE
     Dosage: UNK
  2. ALPRAZOLAM. [Concomitant]
     Active Substance: ALPRAZOLAM
     Dosage: UNK
  3. METOPROLOL. [Concomitant]
     Active Substance: METOPROLOL
     Dosage: UNK
  4. DUPIXENT [Suspect]
     Active Substance: DUPILUMAB
     Indication: DERMATITIS ATOPIC
     Dosage: 300 MG, QOW
     Route: 058
     Dates: start: 20191001
  5. ZOLPIDEM [Concomitant]
     Active Substance: ZOLPIDEM TARTRATE
     Dosage: UNK
  6. CYANOCOBALAMIN. [Concomitant]
     Active Substance: CYANOCOBALAMIN
     Dosage: UNK
  7. FLUOXETINE [Concomitant]
     Active Substance: FLUOXETINE HYDROCHLORIDE
     Dosage: UNK

REACTIONS (1)
  - Dermatitis atopic [Not Recovered/Not Resolved]

NARRATIVE: CASE EVENT DATE: 20210202
